FAERS Safety Report 8054040-4 (Version None)
Quarter: 2012Q1

REPORT INFORMATION
  Report Type: 
  Country: None (occurrence: None)
  Receive Date: 20120118
  Receipt Date: 20120117
  Transmission Date: 20120608
  Serious: Yes (Other)
  Sender: FDA-Public Use
  Company Number: CO-ABBOTT-12P-036-0893608-00

PATIENT
  Sex: Female

DRUGS (1)
  1. HUMIRA [Suspect]
     Indication: PSORIASIS
     Route: 058
     Dates: start: 20110307, end: 20120111

REACTIONS (4)
  - PARAESTHESIA [None]
  - HYPERSENSITIVITY [None]
  - TACHYCARDIA [None]
  - TUBERCULIN TEST POSITIVE [None]
